FAERS Safety Report 10162971 (Version 1)
Quarter: 2014Q2

REPORT INFORMATION
  Report Type: Spontaneous
  Country: US (occurrence: US)
  Receive Date: 20140509
  Receipt Date: 20140509
  Transmission Date: 20141212
  Serious: No
  Sender: FDA-Public Use
  Company Number: US-PFIZER INC-2014124613

PATIENT
  Age: 59 Year
  Sex: Female
  Weight: 74.83 kg

DRUGS (8)
  1. GABAPENTIN [Suspect]
     Indication: FIBROMYALGIA
     Dosage: 600 MG, 3X/DAY
  2. GABAPENTIN [Suspect]
     Indication: NEUROPATHY PERIPHERAL
  3. SOMA [Concomitant]
     Indication: DYSKINESIA
     Dosage: 350 MG, 3X/DAY
  4. PERCOCET [Concomitant]
     Indication: PAIN
     Dosage: UNK, 3X/DAY
  5. ATORVASTATIN [Concomitant]
     Dosage: UNK
  6. METFORMIN [Concomitant]
     Dosage: UNK
  7. MELATONIN [Concomitant]
     Dosage: UNK
  8. CARVEDILOL [Concomitant]
     Dosage: UNK

REACTIONS (1)
  - Drug ineffective [Unknown]
